FAERS Safety Report 8904754 (Version 4)
Quarter: 2014Q2

REPORT INFORMATION
  Report Type: Report from Study
  Country: JP (occurrence: JP)
  Receive Date: 20121113
  Receipt Date: 20140409
  Transmission Date: 20141212
  Serious: Yes (Life-Threatening, Other)
  Sender: FDA-Public Use
  Company Number: JP-VERTEX PHARMACEUTICAL INC.-2012-021557

PATIENT
  Age: 65 Year
  Sex: Male

DRUGS (9)
  1. VX-950 (TELAPREVIR) [Suspect]
     Indication: CHRONIC HEPATITIS C
     Dosage: 2250 MG, QD
     Route: 048
     Dates: start: 20120831, end: 20120915
  2. PEGINTRON [Suspect]
     Indication: CHRONIC HEPATITIS C
     Dosage: 1.5 ?G/KG, QW
     Route: 058
     Dates: start: 20120831, end: 20120920
  3. REBETOL [Suspect]
     Indication: CHRONIC HEPATITIS C
     Dosage: 600 MG, QD
     Route: 048
     Dates: start: 20120831, end: 20120912
  4. REBETOL [Suspect]
     Dosage: 400 MG, QD
     Route: 048
     Dates: start: 20120913, end: 20120915
  5. PREDNISOLONE [Suspect]
     Indication: ADVERSE EVENT
     Dosage: 20 MG, QD
     Route: 048
     Dates: start: 20120907, end: 20121011
  6. NAIXAN [Concomitant]
     Dosage: 100 MG, QD PRN
     Route: 048
     Dates: start: 20120831, end: 20120915
  7. SELBEX [Concomitant]
     Dosage: 100 MG, QD
     Route: 048
     Dates: start: 20120903, end: 20121011
  8. PARIET [Concomitant]
     Dosage: 10 MG, QD
     Route: 048
     Dates: start: 20120914
  9. MUCOSTA [Concomitant]
     Dosage: 300 MG, QD
     Route: 048
     Dates: start: 20120922

REACTIONS (3)
  - Haemoglobin decreased [Recovered/Resolved]
  - Gastrointestinal haemorrhage [Recovered/Resolved]
  - Shock haemorrhagic [Unknown]
